FAERS Safety Report 21082730 (Version 1)
Quarter: 2022Q3

REPORT INFORMATION
  Report Type: Spontaneous
  Country: US (occurrence: US)
  Receive Date: 20220714
  Receipt Date: 20220714
  Transmission Date: 20221026
  Serious: No
  Sender: FDA-Public Use
  Company Number: US-LUPIN PHARMACEUTICALS INC.-2022-09477

PATIENT
  Age: 16 Year
  Sex: Female

DRUGS (13)
  1. BETAMETHASONE [Suspect]
     Active Substance: BETAMETHASONE
     Indication: Multisystem inflammatory syndrome in children
     Dosage: 12 MG, QD OVERLAPPING 2 DOSES OF BETAMETHASONE WITH METHYLPREDNISOLONE
     Route: 065
  2. NOREPINEPHRINE [Suspect]
     Active Substance: NOREPINEPHRINE
     Indication: Hypotension
     Dosage: UNK, INITIAL DOSE OF 3 UG/MIN
     Route: 065
  3. NOREPINEPHRINE [Suspect]
     Active Substance: NOREPINEPHRINE
     Dosage: UNK, CONTINUED ON TREATMENT, REACHING A MAXIMUM DOSE OF NOREPINEPHRINE 7 UG/MIN AT 24 H
     Route: 065
  4. CEFTRIAXONE [Suspect]
     Active Substance: CEFTRIAXONE
     Indication: Antibiotic therapy
     Dosage: 2 GRAM, QD
     Route: 042
  5. VANCOMYCIN [Suspect]
     Active Substance: VANCOMYCIN
     Indication: Antibiotic therapy
     Dosage: 1500 MG, LOADING DOSE 1500 MG
     Route: 042
  6. ENOXAPARIN [Suspect]
     Active Substance: ENOXAPARIN
     Indication: Anticoagulant therapy
     Dosage: UNK UNK, BID (0.5 M/KG EVERY 12 H)
     Route: 065
  7. METHYLPREDNISOLONE [Suspect]
     Active Substance: METHYLPREDNISOLONE
     Indication: Multisystem inflammatory syndrome in children
     Dosage: 30 MG, BID, FOR 5 DAYS WITH OVERLAPPING 2 DOSES OF BETAMETHASONE
     Route: 042
  8. PRIVIGEN [Suspect]
     Active Substance: HUMAN IMMUNOGLOBULIN G
     Indication: Multisystem inflammatory syndrome in children
     Dosage: UNK, A ONE-TIME DOSE OF 2 G/KG
     Route: 042
  9. ACETAMINOPHEN [Suspect]
     Active Substance: ACETAMINOPHEN
     Indication: Pyrexia
     Dosage: UNK
     Route: 065
  10. DEXAMETHASONE [Suspect]
     Active Substance: DEXAMETHASONE
     Indication: Maternal therapy to enhance foetal lung maturity
     Dosage: 6 MG, BID, FOR TWO DOSES
     Route: 065
  11. DEXAMETHASONE [Suspect]
     Active Substance: DEXAMETHASONE
     Indication: Multisystem inflammatory syndrome in children
  12. PREDNISONE [Suspect]
     Active Substance: PREDNISONE
     Indication: Multisystem inflammatory syndrome in children
     Dosage: 15 MG, BID, TAPER WITH 15 MG EVERY 12 H FOR 5 DAYS, THEN 15 MG DAILY FOR 5 DAYS
     Route: 048
  13. PREDNISONE [Suspect]
     Active Substance: PREDNISONE
     Dosage: 15 MG, QD, TAPER WITH 15 MG EVERY 12 H FOR 5 DAYS, THEN 15 MG DAILY FOR 5 DAYS
     Route: 048

REACTIONS (2)
  - Maternal exposure during pregnancy [Unknown]
  - Normal newborn [Unknown]
